FAERS Safety Report 7956474-2 (Version None)
Quarter: 2011Q4

REPORT INFORMATION
  Report Type: 
  Country: None (occurrence: None)
  Receive Date: 20111205
  Receipt Date: 20111121
  Transmission Date: 20120403
  Serious: Yes (Hospitalization)
  Sender: FDA-Public Use
  Company Number: IT-CELGENEUS-083-21880-11103116

PATIENT
  Sex: Male

DRUGS (9)
  1. DEXAMETHASONE [Concomitant]
     Indication: MULTIPLE MYELOMA
     Route: 065
     Dates: start: 20100726, end: 20110630
  2. TAMSULOSIN HYDROCHLORIDE [Concomitant]
     Dosage: 1
     Route: 065
  3. ALLOPURINOL [Concomitant]
     Dosage: .1429
     Route: 065
  4. REVLIMID [Suspect]
     Dosage: 5 MILLIGRAM
     Route: 048
     Dates: start: 20110514, end: 20110630
  5. FOLINA [Concomitant]
     Dosage: 1
     Route: 065
  6. DEXAMETHASONE SODIUM PHOSPHATE [Concomitant]
     Dosage: 2.8571 MILLIGRAM
     Route: 065
  7. REVLIMID [Suspect]
     Route: 048
     Dates: start: 20100726
  8. RABEPRAZOLE SODIUM [Concomitant]
     Dosage: 40 MILLIGRAM
     Route: 065
  9. TICLOPIDINA [Concomitant]
     Dosage: 1
     Route: 065

REACTIONS (2)
  - SALIVARY GLAND CANCER STAGE III [None]
  - SKIN TOXICITY [None]
